FAERS Safety Report 6762475-2 (Version None)
Quarter: 2010Q2

REPORT INFORMATION
  Report Type: 
  Country: None (occurrence: None)
  Receive Date: 20100609
  Receipt Date: 20100531
  Transmission Date: 20101027
  Serious: Yes (Hospitalization)
  Sender: FDA-Public Use
  Company Number: DE-ALEXION-A201000508

PATIENT

DRUGS (9)
  1. SOLIRIS [Suspect]
     Indication: PAROXYSMAL NOCTURNAL HAEMOGLOBINURIA
     Dosage: 600 MG, UNK
     Route: 042
     Dates: start: 20071010, end: 20080901
  2. SOLIRIS [Suspect]
     Dosage: MAINTENANCE
     Route: 042
     Dates: start: 20081201
  3. BONDREAT [Concomitant]
     Indication: OSTEOPOROSIS
     Dosage: 2 MG, UNK
     Dates: start: 20100401
  4. DECORTIN H [Concomitant]
     Indication: PREMEDICATION
     Dosage: 5 MG, UNK
  5. BISOPROLOL [Concomitant]
     Indication: HYPERTENSION
     Dosage: 2.5 MG, UNK
     Dates: start: 20040101
  6. SIMVASTATIN [Concomitant]
     Indication: BLOOD CHOLESTEROL INCREASED
     Dosage: 20 MG, UNK
     Dates: start: 20070101
  7. EXJADE [Concomitant]
     Indication: SERUM FERRITIN INCREASED
     Dosage: 1000 MG, UNK
     Dates: start: 20100201
  8. EXJADE [Concomitant]
     Indication: IRON OVERLOAD
  9. COTRIM [Concomitant]
     Indication: INFECTION PROPHYLAXIS
     Dosage: 960 MG, UNK

REACTIONS (1)
  - BRONCHOPNEUMONIA [None]
